FAERS Safety Report 15768312 (Version 2)
Quarter: 2019Q1

REPORT INFORMATION
  Report Type: Report from Study
  Country: KR (occurrence: KR)
  Receive Date: 20181227
  Receipt Date: 20190122
  Transmission Date: 20190417
  Serious: Yes (Hospitalization)
  Sender: FDA-Public Use
  Company Number: KR-GILEAD-2018-0381894

PATIENT
  Age: 5 Year
  Sex: Female
  Weight: 21.1 kg

DRUGS (3)
  1. TENOFOVIR DISOPROXIL FUMARATE. [Suspect]
     Active Substance: TENOFOVIR DISOPROXIL FUMARATE
     Dosage: 3 DF, QD
     Route: 048
     Dates: start: 20160613, end: 20170510
  2. TENOFOVIR DISOPROXIL FUMARATE. [Suspect]
     Active Substance: TENOFOVIR DISOPROXIL FUMARATE
     Dosage: 3.5 DF, QD
     Route: 048
     Dates: start: 20170511, end: 20180708
  3. TENOFOVIR DISOPROXIL FUMARATE. [Suspect]
     Active Substance: TENOFOVIR DISOPROXIL FUMARATE
     Indication: CHRONIC HEPATITIS B
     Dosage: 4 DF, QD
     Route: 048
     Dates: start: 20180709

REACTIONS (1)
  - Adenovirus infection [Recovered/Resolved]

NARRATIVE: CASE EVENT DATE: 20181012
